FAERS Safety Report 16104518 (Version 8)
Quarter: 2020Q1

REPORT INFORMATION
  Report Type: Spontaneous
  Country: FR (occurrence: FR)
  Receive Date: 20190322
  Receipt Date: 20200116
  Transmission Date: 20200409
  Serious: Yes (Death, Other)
  Sender: FDA-Public Use
  Company Number: FR-AUROBINDO-AUR-APL-2019-014551

PATIENT
  Age: 73 Year
  Sex: Male
  Weight: 74 kg

DRUGS (17)
  1. ENOXAPARIN SODIUM. [Concomitant]
     Active Substance: ENOXAPARIN SODIUM
     Indication: ANTICOAGULANT THERAPY
     Dosage: UNK
     Route: 065
     Dates: start: 20180922
  2. AMLODIPINE [Concomitant]
     Active Substance: AMLODIPINE BESYLATE
     Indication: HYPERTENSION
     Dosage: UNK
     Route: 065
     Dates: start: 20180908
  3. VENCLYXTO [Suspect]
     Active Substance: VENETOCLAX
     Indication: CHRONIC LYMPHOCYTIC LEUKAEMIA
     Dosage: UNK
     Route: 048
  4. VENCLYXTO [Suspect]
     Active Substance: VENETOCLAX
     Dosage: 20 MILLIGRAM
     Route: 048
     Dates: start: 20180911, end: 20180918
  5. VENCLYXTO [Suspect]
     Active Substance: VENETOCLAX
     Dosage: UNK
     Route: 048
     Dates: start: 20181010, end: 20181019
  6. GANFORT [Concomitant]
     Active Substance: BIMATOPROST\TIMOLOL
     Indication: GLAUCOMA
     Dosage: UNK
     Route: 065
     Dates: start: 20180908
  7. IMBRUVICA [Suspect]
     Active Substance: IBRUTINIB
     Indication: CHRONIC LYMPHOCYTIC LEUKAEMIA
     Dosage: UNK
     Route: 048
     Dates: start: 20170806
  8. CEFTAZIDIME. [Concomitant]
     Active Substance: CEFTAZIDIME
     Indication: INFECTION
     Dosage: UNK
     Route: 065
     Dates: start: 20180921
  9. CIPROFLOXACIN. [Suspect]
     Active Substance: CIPROFLOXACIN
     Indication: INFECTION
     Dosage: UNK
     Route: 065
     Dates: start: 20180921
  10. VENCLYXTO [Suspect]
     Active Substance: VENETOCLAX
     Dosage: 100 MILLIGRAM
     Route: 048
     Dates: start: 20180926, end: 20181002
  11. VALACICLOVIR [Concomitant]
     Active Substance: VALACYCLOVIR HYDROCHLORIDE
     Indication: ANTIVIRAL TREATMENT
     Dosage: UNK
     Route: 065
     Dates: start: 20180908
  12. BUDESONIDE. [Concomitant]
     Active Substance: BUDESONIDE
     Indication: ASTHMA
     Dosage: UNK
     Route: 065
     Dates: start: 20180907
  13. VENCLYXTO [Suspect]
     Active Substance: VENETOCLAX
     Dosage: UNK
     Route: 048
     Dates: start: 20181003, end: 20181009
  14. BACTRIM [Suspect]
     Active Substance: SULFAMETHOXAZOLE\TRIMETHOPRIM
     Indication: INFECTION
     Dosage: UNK
     Route: 065
     Dates: start: 20180923
  15. VENCLYXTO [Suspect]
     Active Substance: VENETOCLAX
     Dosage: 50 MILLIGRAM
     Route: 048
     Dates: start: 20180919, end: 20180925
  16. ALLOPURINOL. [Concomitant]
     Active Substance: ALLOPURINOL
     Indication: HYPERURICAEMIA
     Dosage: UNK
     Route: 065
     Dates: start: 20180907
  17. FOLINIC ACID [Concomitant]
     Active Substance: LEUCOVORIN
     Indication: HAEMATOTOXICITY
     Dosage: UNK
     Route: 065
     Dates: start: 20180923

REACTIONS (17)
  - Death [Fatal]
  - Hypogammaglobulinaemia [Fatal]
  - Respiratory distress [Fatal]
  - Oedema peripheral [Fatal]
  - Hypertension [Fatal]
  - Hyperkalaemia [Not Recovered/Not Resolved]
  - Decubitus ulcer [Fatal]
  - Hypertensive crisis [Fatal]
  - Rhinitis [Fatal]
  - Splenomegaly [Fatal]
  - Pseudomonas infection [Fatal]
  - Hypocalcaemia [Fatal]
  - Blood potassium increased [Fatal]
  - Haematotoxicity [Fatal]
  - Infection [Fatal]
  - Off label use [Fatal]
  - Diarrhoea [Fatal]

NARRATIVE: CASE EVENT DATE: 201809
